FAERS Safety Report 13961272 (Version 1)
Quarter: 2017Q3

REPORT INFORMATION
  Report Type: Spontaneous
  Country: US (occurrence: None)
  Receive Date: 20170912
  Receipt Date: 20170912
  Transmission Date: 20171128
  Serious: Yes (Disabling)
  Sender: FDA-Public Use
  Company Number: None

PATIENT
  Age: 47 Year
  Sex: Female
  Weight: 56.25 kg

DRUGS (13)
  1. EXCEDRIN EXTRA STRENGTH [Suspect]
     Active Substance: ACETAMINOPHEN\ASPIRIN\CAFFEINE
     Indication: MIGRAINE
     Dosage: 1 PILL?1X1 DAY FOR 15 DAYS PER MONTH
     Route: 048
     Dates: start: 201708
  2. CLARITIN [Concomitant]
     Active Substance: LORATADINE
  3. ALLEGRA [Concomitant]
     Active Substance: FEXOFENADINE HYDROCHLORIDE
  4. FAMITODINE [Concomitant]
  5. MYRBETRIQ [Concomitant]
     Active Substance: MIRABEGRON
  6. BIOTIN [Concomitant]
     Active Substance: BIOTIN
  7. NAPROXEN. [Concomitant]
     Active Substance: NAPROXEN
  8. IRON [Concomitant]
     Active Substance: IRON
  9. BENADRYL [Concomitant]
     Active Substance: DIPHENHYDRAMINE HYDROCHLORIDE
  10. ACETAMINOPHEN. [Concomitant]
     Active Substance: ACETAMINOPHEN
  11. ALEVE [Suspect]
     Active Substance: NAPROXEN SODIUM
     Indication: MIGRAINE
     Dosage: 1 PILL?1X1 DAY FOR 15 DAYS PER MONTH
     Route: 048
     Dates: start: 201612
  12. MULTIVITAMIN [Concomitant]
     Active Substance: VITAMINS
  13. ACIDOPHILUS [Concomitant]
     Active Substance: LACTOBACILLUS ACIDOPHILUS

REACTIONS (10)
  - Hypoaesthesia [None]
  - Oral discomfort [None]
  - Palpitations [None]
  - Reaction to colouring [None]
  - Pruritus [None]
  - Lip swelling [None]
  - Odynophagia [None]
  - Heart rate increased [None]
  - Cough [None]
  - Limb discomfort [None]

NARRATIVE: CASE EVENT DATE: 20161015
